FAERS Safety Report 7406163-8 (Version None)
Quarter: 2011Q2

REPORT INFORMATION
  Report Type: 
  Country: None (occurrence: None)
  Receive Date: 20110411
  Receipt Date: 20110406
  Transmission Date: 20111010
  Serious: Yes (Death, Hospitalization, Other)
  Sender: FDA-Public Use
  Company Number: US-AMGEN-USASP2011015510

PATIENT
  Age: 75 Year
  Sex: Male
  Weight: 81.633 kg

DRUGS (3)
  1. XANAX [Concomitant]
     Dosage: 0.5 MG, UNK
     Dates: start: 20100728
  2. NPLATE [Suspect]
     Dates: start: 20100811, end: 20100825
  3. NPLATE [Suspect]
     Indication: IDIOPATHIC THROMBOCYTOPENIC PURPURA
     Dosage: 1.0 A?G/KG, UNK
     Route: 058
     Dates: start: 20100811, end: 20100818

REACTIONS (6)
  - HAEMATOLOGICAL MALIGNANCY [None]
  - WHITE BLOOD CELL COUNT INCREASED [None]
  - MYELODYSPLASTIC SYNDROME [None]
  - ACUTE MYELOID LEUKAEMIA [None]
  - THROMBOCYTOPENIA [None]
  - NORMOCHROMIC NORMOCYTIC ANAEMIA [None]
